FAERS Safety Report 23105259 (Version 1)
Quarter: 2023Q4

REPORT INFORMATION
  Report Type: Spontaneous
  Country: GB (occurrence: GB)
  Receive Date: 20231025
  Receipt Date: 20231025
  Transmission Date: 20240110
  Serious: Yes (Hospitalization)
  Sender: FDA-Public Use
  Company Number: None

PATIENT
  Age: 34 Year
  Sex: Female

DRUGS (2)
  1. MIRENA [Suspect]
     Active Substance: LEVONORGESTREL
     Indication: Uterine polyp
     Dosage: 20?G/DAY
     Route: 015
     Dates: start: 20230630, end: 20231017
  2. FEXOFENADINE [Concomitant]
     Active Substance: FEXOFENADINE HYDROCHLORIDE
     Dates: start: 20210101

REACTIONS (5)
  - Eczema [Not Recovered/Not Resolved]
  - Rash [Recovering/Resolving]
  - Skin hyperpigmentation [Not Recovered/Not Resolved]
  - Erythema [None]
  - Skin infection [None]

NARRATIVE: CASE EVENT DATE: 20230811
